FAERS Safety Report 4401746-1 (Version None)
Quarter: 2004Q3

REPORT INFORMATION
  Report Type: 
  Country: None (occurrence: None)
  Receive Date: 20040714
  Receipt Date: 20040630
  Transmission Date: 20050211
  Serious: Yes (Other)
  Sender: FDA-Public Use
  Company Number: US_0406103943

PATIENT
  Age: 52 Year
  Sex: Male

DRUGS (4)
  1. HEPARIN SODIUM [Suspect]
  2. REOPRO [Concomitant]
  3. METALYSE (TENECTEPLASE) [Concomitant]
  4. ASA (ACETYLSALICYCLIC ACID) [Concomitant]

REACTIONS (2)
  - MYOCARDIAL INFARCTION [None]
  - RETROPERITONEAL HAEMORRHAGE [None]
